FAERS Safety Report 5775516-6 (Version None)
Quarter: 2008Q2

REPORT INFORMATION
  Report Type: 
  Country: None (occurrence: None)
  Receive Date: 20080617
  Receipt Date: 20080613
  Transmission Date: 20081010
  Serious: Yes (Other)
  Sender: FDA-Public Use
  Company Number: KR-BRISTOL-MYERS SQUIBB COMPANY-14226112

PATIENT
  Sex: Male

DRUGS (4)
  1. BARACLUDE [Suspect]
     Indication: HEPATITIS B
     Route: 048
     Dates: start: 20080201
  2. RADIOTHERAPY [Suspect]
     Dates: start: 20080201
  3. VITAMIN B COMPLEX CAP [Concomitant]
  4. LEGALON [Concomitant]

REACTIONS (4)
  - DIZZINESS [None]
  - FATIGUE [None]
  - HAEMATURIA [None]
  - HEPATIC NEOPLASM MALIGNANT [None]
